FAERS Safety Report 13395026 (Version 7)
Quarter: 2018Q3

REPORT INFORMATION
  Report Type: Report from Study
  Country: JP (occurrence: JP)
  Receive Date: 20170403
  Receipt Date: 20180906
  Transmission Date: 20181010
  Serious: Yes (Hospitalization, Other)
  Sender: FDA-Public Use
  Company Number: JP-UCBSA-2017011474

PATIENT
  Age: 61 Year
  Sex: Female
  Weight: 47 kg

DRUGS (18)
  1. CERTOLIZUMAB PEGOL RA [Suspect]
     Active Substance: CERTOLIZUMAB PEGOL
     Dosage: 200 MG, EV 2 WEEKS(QOW)
     Route: 058
     Dates: start: 20150420, end: 20160709
  2. PREDNISOLONE. [Suspect]
     Active Substance: PREDNISOLONE
     Dosage: 3 MG DAILY
     Route: 048
     Dates: start: 20150526
  3. FOLIAMIN [Concomitant]
     Active Substance: FOLIC ACID
     Indication: RHEUMATOID ARTHRITIS
     Dosage: 5 MG, ONCE DAILY (QD)
     Route: 048
  4. PITAVASTATIN CALCIUM [Concomitant]
     Active Substance: PITAVASTATIN CALCIUM
     Indication: HYPERCHOLESTEROLAEMIA
     Dosage: UNK
     Route: 048
  5. ALENDRONATE SODIUM. [Concomitant]
     Active Substance: ALENDRONATE SODIUM
     Indication: OSTEOPOROSIS
     Dosage: 35 MG, ONCE DAILY (QD)
     Route: 048
  6. NEXIUM [Concomitant]
     Active Substance: ESOMEPRAZOLE MAGNESIUM
     Indication: PROPHYLAXIS
     Dosage: 20 MG, ONCE DAILY (QD)
     Route: 048
     Dates: end: 20161216
  7. CALONAL [Concomitant]
     Active Substance: ACETAMINOPHEN
     Indication: RHEUMATOID ARTHRITIS
     Dosage: 1500 MG, ONCE DAILY (QD)
     Route: 048
     Dates: start: 20151217
  8. METOLATE [Concomitant]
     Active Substance: METHOTREXATE
     Indication: RHEUMATOID ARTHRITIS
     Dosage: 8 MG DAILY
     Route: 048
     Dates: end: 20150310
  9. DICLOFENAC SODIUM. [Concomitant]
     Active Substance: DICLOFENAC SODIUM
     Indication: RHEUMATOID ARTHRITIS
     Dosage: 75 MG, ONCE DAILY (QD)
     Route: 048
     Dates: end: 20161216
  10. CERTOLIZUMAB PEGOL RA [Suspect]
     Active Substance: CERTOLIZUMAB PEGOL
     Indication: RHEUMATOID ARTHRITIS
     Dosage: 200 MG, EV 2 WEEKS(QOW)
     Route: 058
     Dates: start: 20140418, end: 20150303
  11. CERTOLIZUMAB PEGOL RA [Suspect]
     Active Substance: CERTOLIZUMAB PEGOL
     Dosage: 200 MG, EV 2 WEEKS(QOW)
     Route: 058
     Dates: start: 20160806, end: 20161118
  12. PROGRAF [Suspect]
     Active Substance: TACROLIMUS\TACROLIMUS ANHYDROUS
     Indication: RHEUMATOID ARTHRITIS
     Dosage: 1 MG
     Route: 048
     Dates: start: 20160527
  13. PREDNISOLONE. [Suspect]
     Active Substance: PREDNISOLONE
     Indication: RHEUMATOID ARTHRITIS
     Dosage: 6 MG DAILY
     Route: 048
     Dates: start: 20150216, end: 20150510
  14. PREDONINE [Concomitant]
     Active Substance: PREDNISOLONE
     Indication: RHEUMATOID ARTHRITIS
     Dosage: 2.5 MG DAILY
     Route: 048
     Dates: end: 20150118
  15. PREDONINE [Concomitant]
     Active Substance: PREDNISOLONE
     Dosage: 10 MG DAILY
     Route: 048
     Dates: start: 20150119, end: 20150215
  16. VITAMIN D [Concomitant]
     Active Substance: CHOLECALCIFEROL
     Indication: PARADOXICAL DRUG REACTION
  17. PREDNISOLONE. [Suspect]
     Active Substance: PREDNISOLONE
     Dosage: 4 MG DAILY
     Route: 048
     Dates: start: 20150511, end: 20150525
  18. DEPAS [Concomitant]
     Active Substance: ETIZOLAM
     Indication: DEPRESSIVE SYMPTOM
     Dosage: 0.5 MG, ONCE DAILY (QD)
     Route: 048

REACTIONS (4)
  - Paradoxical drug reaction [Unknown]
  - Pneumonia [Recovering/Resolving]
  - Oral herpes [Recovering/Resolving]
  - Hepatitis B core antibody positive [Not Recovered/Not Resolved]

NARRATIVE: CASE EVENT DATE: 201412
